FAERS Safety Report 18555571 (Version 1)
Quarter: 2020Q4

REPORT INFORMATION
  Report Type: Spontaneous
  Country: US (occurrence: US)
  Receive Date: 20201127
  Receipt Date: 20201127
  Transmission Date: 20210114
  Serious: Yes (Other)
  Sender: FDA-Public Use
  Company Number: US-TAKEDA-2020TUS051084

PATIENT
  Age: 15 Year
  Sex: Male

DRUGS (5)
  1. GATTEX [Suspect]
     Active Substance: TEDUGLUTIDE\WATER
     Indication: COLITIS ULCERATIVE
     Route: 065
  2. GATTEX [Suspect]
     Active Substance: TEDUGLUTIDE\WATER
     Indication: COLITIS ULCERATIVE
     Route: 065
  3. TPN [AMINO ACIDS NOS;CARBOHYDRATES NOS;MINERALS NOS;VITAMINS NOS] [Concomitant]
     Active Substance: AMINO ACIDS\CARBOHYDRATES\MINERALS\VITAMINS
  4. GATTEX [Suspect]
     Active Substance: TEDUGLUTIDE\WATER
     Indication: COLITIS ULCERATIVE
     Route: 065
  5. GATTEX [Suspect]
     Active Substance: TEDUGLUTIDE\WATER
     Indication: COLITIS ULCERATIVE
     Route: 065

REACTIONS (5)
  - Intestinal anastomosis [Unknown]
  - Diarrhoea [Unknown]
  - Colectomy total [Unknown]
  - Weight decreased [Unknown]
  - Off label use [Unknown]
